FAERS Safety Report 8957115 (Version 1)
Quarter: 2012Q4

REPORT INFORMATION
  Report Type: 
  Country: DE (occurrence: DE)
  Receive Date: 20121211
  Receipt Date: 20121211
  Transmission Date: 20130627
  Serious: Yes (Other)
  Sender: FDA-Public Use
  Company Number: DE-ROCHE-1164877

PATIENT
  Age: 35 Year
  Sex: Female
  Weight: 87 kg

DRUGS (5)
  1. PEGASYS [Suspect]
     Indication: CHRONIC HEPATITIS C
     Route: 065
     Dates: start: 20110912, end: 20111125
  2. COPEGUS [Suspect]
     Indication: CHRONIC HEPATITIS C
     Route: 065
     Dates: start: 20110912, end: 20111125
  3. VICTRELIS [Concomitant]
     Indication: CHRONIC HEPATITIS C
     Route: 065
     Dates: start: 20111004, end: 20111125
  4. L-POLAMIDON [Concomitant]
     Indication: THERAPEUTIC PROCEDURE
     Route: 065
     Dates: start: 2007
  5. IBUPROFEN [Concomitant]
     Dosage: frequency as required
     Route: 065

REACTIONS (12)
  - Diarrhoea [Recovering/Resolving]
  - Asthenia [Unknown]
  - Decreased appetite [Unknown]
  - Anal pruritus [Unknown]
  - Listless [Unknown]
  - Insomnia [Unknown]
  - Anxiety [Unknown]
  - Obsessive rumination [Unknown]
  - Dizziness [Unknown]
  - Panic reaction [Unknown]
  - Tachycardia [Unknown]
  - Haemoglobin decreased [Unknown]
